FAERS Safety Report 13213753 (Version 3)
Quarter: 2017Q1

REPORT INFORMATION
  Report Type: Spontaneous
  Country: JP (occurrence: JP)
  Receive Date: 20170210
  Receipt Date: 20170217
  Transmission Date: 20170428
  Serious: Yes (Other)
  Sender: FDA-Public Use
  Company Number: JP-SA-2017SA022022

PATIENT
  Age: 53 Year
  Sex: Female

DRUGS (3)
  1. CLEXANE [Suspect]
     Active Substance: ENOXAPARIN SODIUM
     Indication: LIP AND/OR ORAL CAVITY CANCER
     Route: 058
  2. ALPROSTADIL. [Concomitant]
     Active Substance: ALPROSTADIL
     Route: 065
     Dates: start: 20170120, end: 20170127
  3. CEFMETAZON [Concomitant]
     Active Substance: CEFMETAZOLE SODIUM
     Route: 065
     Dates: start: 20170120, end: 20170122

REACTIONS (2)
  - Platelet count increased [Recovering/Resolving]
  - Hyperkalaemia [Recovered/Resolved]

NARRATIVE: CASE EVENT DATE: 20170130
